FAERS Safety Report 7389806-7 (Version None)
Quarter: 2011Q2

REPORT INFORMATION
  Report Type: 
  Country: None (occurrence: None)
  Receive Date: 20110401
  Receipt Date: 20110325
  Transmission Date: 20111010
  Serious: Yes (Hospitalization)
  Sender: FDA-Public Use
  Company Number: FR-ELI_LILLY_AND_COMPANY-FR201103007397

PATIENT
  Age: 59 Year
  Sex: Male

DRUGS (2)
  1. BYETTA [Suspect]
     Route: 058
  2. INSULIN [Concomitant]
     Route: 058

REACTIONS (3)
  - LUNG DISORDER [None]
  - OFF LABEL USE [None]
  - VOMITING [None]
